FAERS Safety Report 13795959 (Version 1)
Quarter: 2017Q3

REPORT INFORMATION
  Report Type: Spontaneous
  Country: CZ (occurrence: CZ)
  Receive Date: 20170726
  Receipt Date: 20170726
  Transmission Date: 20171127
  Serious: Yes (Hospitalization)
  Sender: FDA-Public Use
  Company Number: CZ-ALLERGAN-1731283US

PATIENT
  Age: 13 Year
  Sex: Female
  Weight: 55 kg

DRUGS (4)
  1. ESCITALOPRAM OXALATE - BP [Suspect]
     Active Substance: ESCITALOPRAM OXALATE
     Indication: SUICIDE ATTEMPT
     Dosage: 100 MG, UNK
     Route: 065
     Dates: start: 20170511
  2. STOPEX [Suspect]
     Active Substance: DEXTROMETHORPHAN HYDROBROMIDE
     Indication: SUICIDE ATTEMPT
     Dosage: UNK
     Route: 065
     Dates: start: 20170511
  3. PARALEN [Suspect]
     Active Substance: ACETAMINOPHEN
     Indication: SUICIDE ATTEMPT
     Dosage: 6000 MG, QD
     Route: 065
     Dates: start: 20170511
  4. TETRAHYDROCANNABINOL [Suspect]
     Active Substance: DRONABINOL
     Indication: SUICIDE ATTEMPT
     Dosage: UNK
     Route: 065
     Dates: start: 20170511

REACTIONS (5)
  - Intentional product misuse [Unknown]
  - Intentional overdose [Unknown]
  - Confusional state [Unknown]
  - Pupillary reflex impaired [Unknown]
  - Somnolence [Unknown]

NARRATIVE: CASE EVENT DATE: 20170511
